FAERS Safety Report 8516181-4 (Version None)
Quarter: 2012Q3

REPORT INFORMATION
  Report Type: 
  Country: None (occurrence: None)
  Receive Date: 20120717
  Receipt Date: 20120703
  Transmission Date: 20120928
  Serious: Yes (Hospitalization)
  Sender: FDA-Public Use
  Company Number: US-BAYER-2012-055810

PATIENT
  Age: 30 Year
  Sex: Female
  Weight: 53.061 kg

DRUGS (1)
  1. MIRENA [Suspect]
     Indication: CONTRACEPTION
     Dosage: 20 MCG/24HR, CONT
     Route: 015
     Dates: start: 20110812, end: 20110927

REACTIONS (3)
  - MUSCLE SPASMS [None]
  - DEVICE DISLOCATION [None]
  - UTERINE PERFORATION [None]
